FAERS Safety Report 4693152-X (Version None)
Quarter: 2005Q2

REPORT INFORMATION
  Report Type: 
  Country: None (occurrence: None)
  Receive Date: 20050128
  Receipt Date: 20050128
  Transmission Date: 20051028
  Serious: Yes (Other)
  Sender: FDA-Public Use
  Company Number: None

PATIENT
  Age: 87 Year
  Sex: Female
  Weight: 87.0906 kg

DRUGS (1)
  1. BENAZEPRIL HCL [Suspect]
     Indication: HYPERTENSION
     Dosage: 40 MG D
     Dates: start: 20040601

REACTIONS (3)
  - BLOOD PRESSURE INCREASED [None]
  - CHEST DISCOMFORT [None]
  - PHARMACEUTICAL PRODUCT COMPLAINT [None]
